FAERS Safety Report 24352269 (Version 1)
Quarter: 2024Q3

REPORT INFORMATION
  Report Type: Spontaneous
  Country: US (occurrence: None)
  Receive Date: 20240921
  Receipt Date: 20240921
  Transmission Date: 20241017
  Serious: Yes (Life-Threatening, Hospitalization, Other)
  Sender: Public
  Company Number: None

PATIENT
  Age: 44 Year
  Sex: Male
  Weight: 130.5 kg

DRUGS (4)
  1. WEGOVY [Suspect]
     Active Substance: SEMAGLUTIDE
     Indication: Weight decreased
     Dosage: 1 INJECTION SUBCUTANEOUS
     Route: 058
     Dates: start: 20240911, end: 20240911
  2. LISINOPRIL [Concomitant]
     Active Substance: LISINOPRIL
  3. Amloadapene [Concomitant]
  4. HYDROCODONE [Concomitant]
     Active Substance: HYDROCODONE

REACTIONS (3)
  - Back pain [None]
  - Rhabdomyolysis [None]
  - Incorrect dose administered [None]

NARRATIVE: CASE EVENT DATE: 20240915
